FAERS Safety Report 16410418 (Version 1)
Quarter: 2019Q2

REPORT INFORMATION
  Report Type: Spontaneous
  Country: US (occurrence: US)
  Receive Date: 20190610
  Receipt Date: 20190610
  Transmission Date: 20190711
  Serious: No
  Sender: FDA-Public Use
  Company Number: US-PFIZER INC-2019245726

PATIENT
  Age: 78 Year
  Sex: Male
  Weight: 74.84 kg

DRUGS (1)
  1. ADVIL [Suspect]
     Active Substance: IBUPROFEN
     Indication: OSTEOARTHRITIS
     Dosage: UNK UNK, AS NEEDED (THREE OR FOUR OR UP TO FIVE CAPLETS BY MOUTH AS NEEDED)
     Route: 048

REACTIONS (3)
  - Arthritis [Unknown]
  - Intentional product misuse [Unknown]
  - Drug ineffective [Not Recovered/Not Resolved]
